FAERS Safety Report 10226759 (Version 3)
Quarter: 2014Q4

REPORT INFORMATION
  Report Type: Spontaneous
  Country: IT (occurrence: IT)
  Receive Date: 20140610
  Receipt Date: 20141118
  Transmission Date: 20150528
  Serious: Yes (Death, Life-Threatening, Hospitalization, Other)
  Sender: FDA-Public Use
  Company Number: IT-MERCK-1406ITA001669

PATIENT
  Age: 69 Year
  Sex: Male
  Weight: 70 kg

DRUGS (3)
  1. TELAPREVIR [Suspect]
     Active Substance: TELAPREVIR
     Indication: ANTIVIRAL TREATMENT
     Dosage: 2250 MG DAILY/ 3 TABLETS + 3 TABLETS
     Route: 048
     Dates: start: 20140325, end: 20140503
  2. RIBAVIRIN. [Suspect]
     Active Substance: RIBAVIRIN
     Indication: ANTIVIRAL TREATMENT
     Dosage: 1 G DAILY/ 3 TABLETS+ 2 TABLETS
     Route: 048
     Dates: start: 20140325, end: 20140503
  3. PEGINTERFERON LAMBDA-1A [Suspect]
     Active Substance: PEGINTERFERON LAMBDA-1A
     Indication: ANTIVIRAL TREATMENT
     Dosage: 1 DOSE(UNIT) WEEKLY
     Route: 058
     Dates: start: 20140325, end: 20140503

REACTIONS (6)
  - Ascites [Fatal]
  - Rash [Fatal]
  - Hepatic failure [Fatal]
  - Encephalopathy [Fatal]
  - Pyrexia [Fatal]
  - Cholestasis [Fatal]

NARRATIVE: CASE EVENT DATE: 20140407
